FAERS Safety Report 6173179-1 (Version None)
Quarter: 2009Q2

REPORT INFORMATION
  Report Type: 
  Country: None (occurrence: None)
  Receive Date: 20090430
  Receipt Date: 20090410
  Transmission Date: 20091009
  Serious: Yes (Hospitalization)
  Sender: FDA-Public Use
  Company Number: JP-PFIZER INC-2009195087

PATIENT

DRUGS (8)
  1. NORVASC [Suspect]
     Indication: HYPERTENSION
     Dosage: 5 MG, 1X/DAY
     Route: 048
     Dates: start: 20090126, end: 20090324
  2. DONEPEZIL HCL [Suspect]
     Indication: DEMENTIA ALZHEIMER'S TYPE
     Dosage: 3 MG, 1X/DAY
     Route: 048
     Dates: start: 20081104, end: 20081110
  3. DONEPEZIL HCL [Suspect]
     Dosage: 5 MG, 1X/DAY
     Route: 048
     Dates: start: 20081111, end: 20090324
  4. BLOPRESS [Suspect]
     Indication: HYPERTENSION
     Dosage: 4 MG, 1X/DAY
     Route: 048
     Dates: start: 20081129, end: 20090118
  5. BLOPRESS [Suspect]
     Dosage: 8 MG, 1X/DAY
     Route: 048
     Dates: start: 20090119, end: 20090125
  6. BLOPRESS [Suspect]
     Dosage: 4 MG, 1X/DAY
     Route: 048
     Dates: start: 20090126, end: 20090324
  7. SEROQUEL [Concomitant]
     Dosage: 25 MG, 3X/DAY
     Route: 048
     Dates: start: 20081104, end: 20081123
  8. SEROQUEL [Concomitant]
     Dosage: UNK, DOSE DECREASED
     Route: 048
     Dates: start: 20081124, end: 20081229

REACTIONS (1)
  - ATRIOVENTRICULAR BLOCK [None]
